FAERS Safety Report 20041519 (Version 2)
Quarter: 2022Q4

REPORT INFORMATION
  Report Type: Report from Study
  Country: US (occurrence: US)
  Receive Date: 20211108
  Receipt Date: 20221127
  Transmission Date: 20230113
  Serious: Yes (Other)
  Sender: FDA-Public Use
  Company Number: US-ABBVIE-21K-163-4146466-00

PATIENT
  Sex: Male

DRUGS (1)
  1. HUMIRA [Suspect]
     Active Substance: ADALIMUMAB
     Indication: Psoriasis
     Route: 058

REACTIONS (5)
  - Myocardial infarction [Unknown]
  - Coronary artery occlusion [Unknown]
  - Illness [Recovering/Resolving]
  - Heart rate decreased [Unknown]
  - Lipids increased [Unknown]

NARRATIVE: CASE EVENT DATE: 20160101
